FAERS Safety Report 9644458 (Version 3)
Quarter: 2013Q4

REPORT INFORMATION
  Report Type: Spontaneous
  Country: JP (occurrence: JP)
  Receive Date: 20131025
  Receipt Date: 20131115
  Transmission Date: 20140711
  Serious: Yes (Hospitalization, Other)
  Sender: FDA-Public Use
  Company Number: JP-009507513-1310JPN010834

PATIENT
  Age: 69 Year
  Sex: Female

DRUGS (2)
  1. BONALON [Suspect]
     Indication: OSTEOPOROSIS
     Dosage: 35 MG WEEKLY
     Route: 048
  2. BONALON [Suspect]
     Indication: OSTEOPOROSIS
     Dosage: 5 MG DAILY
     Route: 048
     Dates: start: 2003

REACTIONS (1)
  - Femur fracture [Recovered/Resolved]
